FAERS Safety Report 11708507 (Version 1)
Quarter: 2015Q4

REPORT INFORMATION
  Report Type: Spontaneous
  Country: US (occurrence: US)
  Receive Date: 20151104
  Receipt Date: 20151104
  Transmission Date: 20160304
  Serious: No
  Sender: FDA-Public Use
  Company Number: US-ELI_LILLY_AND_COMPANY-US201104004934

PATIENT
  Age: 76 Year
  Sex: Female

DRUGS (2)
  1. FORTEO [Suspect]
     Active Substance: TERIPARATIDE
     Indication: OSTEOPOROSIS
     Dosage: 20 UG, QD
     Route: 065
     Dates: start: 20101001
  2. FORTEO [Suspect]
     Active Substance: TERIPARATIDE
     Dosage: 20 UG, QD

REACTIONS (10)
  - Chills [Recovering/Resolving]
  - Pain in extremity [Recovered/Resolved]
  - Cystitis [Recovering/Resolving]
  - Pyrexia [Recovering/Resolving]
  - Bone pain [Recovered/Resolved]
  - Back pain [Recovered/Resolved]
  - Weight decreased [Unknown]
  - Groin pain [Recovered/Resolved]
  - Malaise [Recovering/Resolving]
  - Influenza [Recovering/Resolving]

NARRATIVE: CASE EVENT DATE: 20110408
